FAERS Safety Report 4751649-8 (Version None)
Quarter: 2005Q3

REPORT INFORMATION
  Report Type: 
  Country: None (occurrence: None)
  Receive Date: 20050824
  Receipt Date: 20041025
  Transmission Date: 20060218
  Serious: Yes (Other)
  Sender: FDA-Public Use
  Company Number: CH-BRISTOL-MYERS SQUIBB COMPANY-12748570

PATIENT
  Age: 44 Year
  Sex: Female

DRUGS (5)
  1. ABILIFY [Suspect]
     Indication: BIPOLAR DISORDER
     Dates: start: 20040924, end: 20041230
  2. RISPERIDONE [Concomitant]
  3. LEVOTHYROXINE [Concomitant]
  4. VALPROATE SODIUM [Concomitant]
  5. LITHIUM [Concomitant]

REACTIONS (7)
  - ABNORMAL DREAMS [None]
  - ANXIETY [None]
  - CONSTIPATION [None]
  - HYPERHIDROSIS [None]
  - INSOMNIA [None]
  - JAW DISORDER [None]
  - SELF INJURIOUS BEHAVIOUR [None]
